FAERS Safety Report 14411729 (Version 1)
Quarter: 2018Q1

REPORT INFORMATION
  Report Type: Spontaneous
  Country: US (occurrence: US)
  Receive Date: 20180119
  Receipt Date: 20180119
  Transmission Date: 20180509
  Serious: No
  Sender: FDA-Public Use
  Company Number: US-PERRIGO-17US024168

PATIENT
  Age: 1 Year
  Sex: Female
  Weight: 9.7 kg

DRUGS (2)
  1. IBUPROFEN. [Suspect]
     Active Substance: IBUPROFEN
     Indication: VIRAL UPPER RESPIRATORY TRACT INFECTION
     Dosage: 75 MG, SINGLE
     Route: 048
     Dates: start: 20170601, end: 20170601
  2. IBUPROFEN. [Suspect]
     Active Substance: IBUPROFEN
     Indication: TEETHING

REACTIONS (2)
  - Exposure to unspecified agent [Recovered/Resolved]
  - Expired product administered [Recovered/Resolved]

NARRATIVE: CASE EVENT DATE: 20170601
